FAERS Safety Report 9578441 (Version 1)
Quarter: 2013Q4

REPORT INFORMATION
  Report Type: Spontaneous
  Country: US (occurrence: US)
  Receive Date: 20131001
  Receipt Date: 20131001
  Transmission Date: 20140711
  Serious: No
  Sender: FDA-Public Use
  Company Number: US-AMGEN-USASP2013013599

PATIENT
  Sex: Female
  Weight: 62.13 kg

DRUGS (9)
  1. ENBREL [Suspect]
     Indication: RHEUMATOID ARTHRITIS
     Dosage: 50 MG, ONCE A WEEK
     Route: 058
  2. VYTORIN [Concomitant]
     Dosage: 10-40 MG, UNK
  3. AVALIDE [Concomitant]
     Dosage: 300-12.5 UNK, UNK
  4. TOPROL [Concomitant]
     Dosage: 50 MG, UNK
  5. BONIVA [Concomitant]
     Dosage: 150 MG, UNK
  6. SYNTHROID [Concomitant]
     Dosage: 25 MUG, UNK
  7. SPIRIVA HANDIHALER [Concomitant]
     Dosage: UNK
  8. ADVAIR HFA [Concomitant]
     Dosage: 45/21 UNK, UNK
  9. OCUVITE                            /01053801/ [Concomitant]
     Dosage: UNK

REACTIONS (1)
  - Influenza [Unknown]
